FAERS Safety Report 4749731-4 (Version None)
Quarter: 2005Q3

REPORT INFORMATION
  Report Type: 
  Country: None (occurrence: None)
  Receive Date: 20050822
  Receipt Date: 20050812
  Transmission Date: 20060218
  Serious: Yes (Life-Threatening)
  Sender: FDA-Public Use
  Company Number: CH-MERCK-0508CHE00014

PATIENT
  Age: 69 Year
  Sex: Male

DRUGS (7)
  1. PRIMAXIN [Suspect]
     Indication: BACTERIAL INFECTION
     Route: 041
     Dates: start: 20050408, end: 20050423
  2. VANCOMYCIN HYDROCHLORIDE [Suspect]
     Indication: BACTERIAL INFECTION
     Route: 041
     Dates: start: 20050408, end: 20050423
  3. VITAMINS (UNSPECIFIED) [Concomitant]
     Route: 041
  4. DEXTROSE AND SODIUM CHLORIDE [Concomitant]
     Route: 042
  5. HEPARIN [Concomitant]
     Route: 042
  6. IPRATROPIUM BROMIDE [Concomitant]
     Route: 055
  7. ALBUTEROL SULFATE [Concomitant]
     Route: 055

REACTIONS (8)
  - CRYOGLOBULINAEMIA [None]
  - FUNGUS URINE TEST POSITIVE [None]
  - GENERAL PHYSICAL HEALTH DETERIORATION [None]
  - GLOMERULONEPHRITIS [None]
  - RENAL FAILURE [None]
  - SOMNOLENCE [None]
  - URINARY TRACT INFECTION [None]
  - VASCULITIS [None]
